FAERS Safety Report 6039369-3 (Version None)
Quarter: 2009Q1

REPORT INFORMATION
  Report Type: 
  Country: None (occurrence: None)
  Receive Date: 20090114
  Receipt Date: 20090105
  Transmission Date: 20090719
  Serious: Yes (Hospitalization)
  Sender: FDA-Public Use
  Company Number: DEP_00203_2009

PATIENT
  Age: 61 Year
  Sex: Female

DRUGS (7)
  1. METFORMIN HCL [Suspect]
     Indication: DIABETES MELLITUS
     Dosage: (DF)
  2. GLYBENCLAMIDE [Concomitant]
  3. DICLOFENAC [Concomitant]
  4. NAPROXEN [Concomitant]
  5. ROFECOXIB [Concomitant]
  6. CAPTOPRIL [Concomitant]
  7. LEVOTHYROXINE SODIUM [Concomitant]

REACTIONS (9)
  - BLOOD GLUCOSE INCREASED [None]
  - BLOOD SODIUM INCREASED [None]
  - BODY TEMPERATURE DECREASED [None]
  - DIARRHOEA [None]
  - HAEMODIALYSIS [None]
  - LACTIC ACIDOSIS [None]
  - METABOLIC ACIDOSIS [None]
  - MUCOSAL DRYNESS [None]
  - RENAL FAILURE ACUTE [None]
